FAERS Safety Report 15087945 (Version 1)
Quarter: 2018Q2

REPORT INFORMATION
  Report Type: Spontaneous
  Country: US (occurrence: US)
  Receive Date: 20180629
  Receipt Date: 20180629
  Transmission Date: 20180711
  Serious: No
  Sender: FDA-Public Use
  Company Number: US-ASTRAZENECA-2018SE72314

PATIENT
  Sex: Male
  Weight: 106.6 kg

DRUGS (3)
  1. BRILINTA [Suspect]
     Active Substance: TICAGRELOR
     Indication: STENT PLACEMENT
     Route: 048
     Dates: start: 201801
  2. BABY ASPIRIN [Concomitant]
     Active Substance: ASPIRIN
  3. BRILINTA [Suspect]
     Active Substance: TICAGRELOR
     Indication: MYOCARDIAL INFARCTION
     Route: 048
     Dates: start: 201801

REACTIONS (9)
  - Arthralgia [Not Recovered/Not Resolved]
  - Hypokinesia [Unknown]
  - Pain in extremity [Not Recovered/Not Resolved]
  - Dyspnoea [Recovering/Resolving]
  - Abnormal behaviour [Unknown]
  - Gait disturbance [Not Recovered/Not Resolved]
  - Musculoskeletal stiffness [Not Recovered/Not Resolved]
  - Thinking abnormal [Unknown]
  - Grip strength decreased [Not Recovered/Not Resolved]
